FAERS Safety Report 9713576 (Version 2)
Quarter: 2013Q4

REPORT INFORMATION
  Report Type: Report from Study
  Country: CA (occurrence: CA)
  Receive Date: 20131126
  Receipt Date: 20131126
  Transmission Date: 20140711
  Serious: Yes (Hospitalization, Other)
  Sender: FDA-Public Use
  Company Number: CA-JNJFOC-20130814075

PATIENT
  Age: 68 Year
  Sex: Male
  Weight: 91.3 kg

DRUGS (3)
  1. REMICADE [Suspect]
     Indication: PSORIATIC ARTHROPATHY
     Route: 042
     Dates: start: 20070626
  2. METHOTREXATE [Concomitant]
     Route: 065
  3. CILAZAPRIL [Concomitant]
     Route: 065

REACTIONS (2)
  - Knee arthroplasty [Recovered/Resolved]
  - Incision site infection [Recovered/Resolved]
